FAERS Safety Report 7363016-1 (Version None)
Quarter: 2011Q1

REPORT INFORMATION
  Report Type: 
  Country: None (occurrence: None)
  Receive Date: 20110321
  Receipt Date: 20110316
  Transmission Date: 20110831
  Serious: No
  Sender: FDA-Public Use
  Company Number: US-PFIZER INC-2011018642

PATIENT
  Sex: Female
  Weight: 62.585 kg

DRUGS (3)
  1. TOPROL-XL [Concomitant]
     Indication: HYPERTENSION
     Dosage: 50 MG, UNK
  2. DIOVANE [Concomitant]
     Indication: HYPERTENSION
     Dosage: 320 MG, DAILY
  3. PROTONIX [Suspect]
     Indication: GASTRIC DISORDER
     Dosage: 40 MG, DAILY
     Route: 048
     Dates: start: 20110123

REACTIONS (2)
  - NAUSEA [None]
  - MALAISE [None]
